FAERS Safety Report 5133672-7 (Version None)
Quarter: 2006Q4

REPORT INFORMATION
  Report Type: 
  Country: None (occurrence: None)
  Receive Date: 20061018
  Receipt Date: 20061005
  Transmission Date: 20070319
  Serious: Yes (Other)
  Sender: FDA-Public Use
  Company Number: 2006124134

PATIENT
  Sex: Male

DRUGS (1)
  1. VIAGRA [Suspect]
     Dosage: ORAL
     Route: 048

REACTIONS (5)
  - HYPOAESTHESIA [None]
  - NERVE INJURY [None]
  - PARAESTHESIA [None]
  - PARALYSIS [None]
  - SENSORY DISTURBANCE [None]
